FAERS Safety Report 19156494 (Version 1)
Quarter: 2021Q2

REPORT INFORMATION
  Report Type: Spontaneous
  Country: US (occurrence: US)
  Receive Date: 20210419
  Receipt Date: 20210419
  Transmission Date: 20210717
  Serious: Yes (Hospitalization, Other)
  Sender: FDA-Public Use
  Company Number: US-ELI_LILLY_AND_COMPANY-US202104004286

PATIENT
  Sex: Female

DRUGS (1)
  1. TRULICITY [Suspect]
     Active Substance: DULAGLUTIDE
     Indication: PRODUCT USED FOR UNKNOWN INDICATION
     Dosage: UNK UNK, UNKNOWN
     Route: 065

REACTIONS (8)
  - Pulmonary embolism [Recovering/Resolving]
  - Gastrointestinal haemorrhage [Recovering/Resolving]
  - Exercise lack of [Unknown]
  - Peripheral swelling [Recovering/Resolving]
  - Anaemia [Recovering/Resolving]
  - Thrombosis [Recovering/Resolving]
  - Wrist fracture [Recovering/Resolving]
  - Diverticulitis [Recovering/Resolving]
